FAERS Safety Report 19910135 (Version 1)
Quarter: 2021Q4

REPORT INFORMATION
  Report Type: Spontaneous
  Country: CN (occurrence: CN)
  Receive Date: 20211003
  Receipt Date: 20211003
  Transmission Date: 20220304
  Serious: Yes (Hospitalization, Other)
  Sender: FDA-Public Use
  Company Number: CN-BAXTER-2021BAX024723

PATIENT
  Age: 2 Year
  Sex: Female
  Weight: 11 kg

DRUGS (32)
  1. CYCLOPHOSPHAMIDE [Suspect]
     Active Substance: CYCLOPHOSPHAMIDE
     Indication: Neuroblastoma
     Dosage: PRIOR REGIMEN
     Route: 041
  2. CYCLOPHOSPHAMIDE [Suspect]
     Active Substance: CYCLOPHOSPHAMIDE
     Dosage: CYCLOPHOSPHAMIDE FOR INJECTION 440.00 MG + 0.9% SODIUM CHLORIDE INJECTION 500ML
     Route: 041
     Dates: start: 20190614, end: 20190614
  3. CYCLOPHOSPHAMIDE [Suspect]
     Active Substance: CYCLOPHOSPHAMIDE
     Dosage: DOSE REINTRODUCED
     Route: 041
  4. SODIUM CHLORIDE [Suspect]
     Active Substance: SODIUM CHLORIDE
     Indication: Medication dilution
     Dosage: PRIOR REGIMEN (DILUTION FOR CYCLOPHOSPHAMIDE)
     Route: 041
  5. SODIUM CHLORIDE [Suspect]
     Active Substance: SODIUM CHLORIDE
     Dosage: CYCLOPHOSPHAMIDE FOR INJECTION+ 0.9% SODIUM CHLORIDE INJECTION
     Route: 041
     Dates: start: 20190614
  6. SODIUM CHLORIDE [Suspect]
     Active Substance: SODIUM CHLORIDE
     Dosage: DOSE REINTRODUCED(DILUTION FOR CYCLOPHOSPHAMIDE)
     Route: 041
  7. SODIUM CHLORIDE [Suspect]
     Active Substance: SODIUM CHLORIDE
     Dosage: PRIOR REGIMEN(DILUTION FOR VINCRISTINE SULFATE)
     Route: 041
  8. SODIUM CHLORIDE [Suspect]
     Active Substance: SODIUM CHLORIDE
     Dosage: VINCRISTINE SULFATE FOR INJECTION + 0.9% SODIUM CHLORIDE INJECTION 100ML
     Route: 041
     Dates: start: 20190614, end: 20190614
  9. SODIUM CHLORIDE [Suspect]
     Active Substance: SODIUM CHLORIDE
     Dosage: DOSE REINTRODUCED (DILUTION FOR VINCRISTINE SULFATE)
     Route: 041
  10. SODIUM CHLORIDE [Suspect]
     Active Substance: SODIUM CHLORIDE
     Dosage: PRIOR REGIMEN (DILUTION FOR ETOPOSIDE INJECTION)
     Route: 041
  11. SODIUM CHLORIDE [Suspect]
     Active Substance: SODIUM CHLORIDE
     Dosage: ETOPOSIDE INJECTION 0.06G IVGTT QD + 0.9% SODIUM CHLORIDE INJECTION 250ML
     Route: 041
     Dates: start: 20190617, end: 20190617
  12. SODIUM CHLORIDE [Suspect]
     Active Substance: SODIUM CHLORIDE
     Dosage: DRUG REINTRODUCED (DILUTION FOR ETOPOSIDE INJECTION)
     Route: 041
  13. DEXTROSE [Suspect]
     Active Substance: DEXTROSE
     Indication: Medication dilution
     Dosage: WITH MESNA INJ 90ML IVGTT QD (BEFORE, AFTER, 3H AFTER, 6H AFTER AND 9H AFTER CYCLOPHOSPHAMIDE)
     Route: 041
     Dates: start: 20190613, end: 20190614
  14. DEXTROSE [Suspect]
     Active Substance: DEXTROSE
     Dosage: DOSE REINTRODUCED (DILUTION FOR MESNA)
     Route: 065
  15. DEXTROSE [Suspect]
     Active Substance: DEXTROSE
     Dosage: PRIOR REGIMEN (DILUTION FOR CISPLATIN INJECTION)
     Route: 041
  16. DEXTROSE [Suspect]
     Active Substance: DEXTROSE
     Dosage: CISPLATIN INJECTION 33.00 MG IVGTT QD + 5% GLUCOSE INJECTION 250ML
     Route: 041
     Dates: start: 20190615, end: 20190615
  17. DEXTROSE [Suspect]
     Active Substance: DEXTROSE
     Dosage: DOSE REINTRODUCED(DILUTION FOR CISPLATIN INJECTION)
     Route: 041
  18. VINCRISTINE SULFATE [Suspect]
     Active Substance: VINCRISTINE SULFATE
     Indication: Neuroblastoma
     Dosage: PRIOR REGIMEN
     Route: 041
  19. VINCRISTINE SULFATE [Suspect]
     Active Substance: VINCRISTINE SULFATE
     Dosage: VINCRISTINE SULFATE FOR INJECTION 0.55 MG+ 0.9% SODIUM CHLORIDE INJECTION 100ML
     Route: 041
     Dates: start: 20190614, end: 20190614
  20. VINCRISTINE SULFATE [Suspect]
     Active Substance: VINCRISTINE SULFATE
     Dosage: DOSE REINTRODUCED
     Route: 041
  21. CISPLATIN [Suspect]
     Active Substance: CISPLATIN
     Indication: Neuroblastoma
     Dosage: PRIOR REGIMEN
     Route: 041
  22. CISPLATIN [Suspect]
     Active Substance: CISPLATIN
     Dosage: CISPLATIN INJECTION 33.00 MG IVGTT QD + 5% GLUCOSE INJECTION 250ML
     Route: 041
     Dates: start: 20190615, end: 20190615
  23. CISPLATIN [Suspect]
     Active Substance: CISPLATIN
     Dosage: DOSE REINTRODUCED
     Route: 041
  24. ETOPOSIDE [Suspect]
     Active Substance: ETOPOSIDE
     Indication: Neuroblastoma
     Dosage: PRIOR REGIMEN
     Route: 041
  25. ETOPOSIDE [Suspect]
     Active Substance: ETOPOSIDE
     Dosage: ETOPOSIDE INJECTION 0.06G + 0.9% SODIUM CHLORIDE INJECTION 250ML
     Route: 041
     Dates: start: 20190617, end: 20190617
  26. ETOPOSIDE [Suspect]
     Active Substance: ETOPOSIDE
     Dosage: DOSE REINTRODUCED
     Route: 041
  27. MESNA [Suspect]
     Active Substance: MESNA
     Indication: Urinary tract disorder prophylaxis
     Dosage: MESNA INJ 90ML (BEFORE,AFTER,3H AFTER,6H AFTER AND 9H AFTER CYCLOPHOSPHAMIDE)+ 5% GLUCOSE INJECTION
     Route: 041
     Dates: start: 20190613, end: 20190614
  28. UBIDECARENONE [Concomitant]
     Active Substance: UBIDECARENONE
     Indication: Nutritional supplementation
     Route: 048
     Dates: start: 20190613, end: 20190624
  29. PALONOSETRON HYDROCHLORIDE [Concomitant]
     Active Substance: PALONOSETRON HYDROCHLORIDE
     Indication: Prophylaxis of nausea and vomiting
     Dosage: PALONOSETRON HYDROCHLORIDE INJECTION 0.125 MG + 5% GLUCOSE INJECTION 100ML
     Route: 041
     Dates: start: 20190613, end: 20190618
  30. LOSEC [Concomitant]
     Active Substance: OMEPRAZOLE
     Indication: Prophylaxis
     Route: 041
     Dates: start: 20190613, end: 20190618
  31. Lutingnuo [Concomitant]
     Indication: Prophylaxis
     Dosage: REDUCED GLUTATHIONE FOR INJECTION
     Route: 041
     Dates: start: 20190613, end: 20190618
  32. FUROSEMIDE [Concomitant]
     Active Substance: FUROSEMIDE
     Indication: Polyuria
     Route: 041
     Dates: start: 20190614, end: 20190615

REACTIONS (2)
  - Myelosuppression [Recovered/Resolved]
  - Myelosuppression [Unknown]

NARRATIVE: CASE EVENT DATE: 20190619
